FAERS Safety Report 5309715-4 (Version None)
Quarter: 2007Q2

REPORT INFORMATION
  Report Type: 
  Country: None (occurrence: None)
  Receive Date: 20070427
  Receipt Date: 20060802
  Transmission Date: 20071010
  Serious: No
  Sender: FDA-Public Use
  Company Number: US-GLAXOSMITHKLINE-A0614702A

PATIENT
  Sex: Male

DRUGS (2)
  1. ZOFRAN [Suspect]
     Indication: NAUSEA
     Dosage: 8MG FOUR TIMES PER DAY
     Route: 042
  2. PALLIATIVE CARE [Concomitant]

REACTIONS (1)
  - DRUG INEFFECTIVE [None]
